FAERS Safety Report 7669204-9 (Version None)
Quarter: 2011Q3

REPORT INFORMATION
  Report Type: 
  Country: None (occurrence: None)
  Receive Date: 20110808
  Receipt Date: 20110728
  Transmission Date: 20111222
  Serious: Yes (Other)
  Sender: FDA-Public Use
  Company Number: PHFR2011GB04007

PATIENT
  Sex: Female

DRUGS (6)
  1. EXELON [Suspect]
     Dosage: 9.5 MG, DAILY
     Route: 062
     Dates: end: 20100803
  2. ASPIRIN [Concomitant]
     Dosage: 75 MG, DAILY
     Route: 065
  3. DULOXETIME HYDROCHLORIDE [Concomitant]
     Dosage: 60 MG, DAILY
     Route: 065
  4. SIMVASTATIN [Concomitant]
     Dosage: 40 MG, DAILY
     Route: 065
  5. EXELON [Suspect]
     Dosage: 4.6 MG, DAILY
     Route: 062
     Dates: start: 20100614
  6. LAMOTRIGINE [Concomitant]
     Route: 065

REACTIONS (3)
  - EPILEPSY [None]
  - APPLICATION SITE ERYTHEMA [None]
  - APPLICATION SITE PRURITUS [None]
